FAERS Safety Report 20102784 (Version 1)
Quarter: 2021Q4

REPORT INFORMATION
  Report Type: Spontaneous
  Country: FR (occurrence: FR)
  Receive Date: 20211123
  Receipt Date: 20211123
  Transmission Date: 20220303
  Serious: Yes (Other)
  Sender: FDA-Public Use
  Company Number: None

PATIENT
  Age: 24 Year
  Sex: Male
  Weight: 104 kg

DRUGS (2)
  1. ACYCLOVIR [Suspect]
     Active Substance: ACYCLOVIR
     Indication: Herpes zoster meningitis
     Dosage: 3 X 1500 MG PAR JOUR
     Route: 041
     Dates: start: 20210904, end: 20210905
  2. ACYCLOVIR [Suspect]
     Active Substance: ACYCLOVIR
     Dosage: 3 X 1000 MG PAR JOUR (10 MG/KG X 3 PAR JOUR)
     Route: 041
     Dates: start: 20210901, end: 20210903

REACTIONS (2)
  - Acute kidney injury [Recovering/Resolving]
  - Injection site vesicles [Recovering/Resolving]

NARRATIVE: CASE EVENT DATE: 20210901
